FAERS Safety Report 7259047-2 (Version None)
Quarter: 2011Q1

REPORT INFORMATION
  Report Type: 
  Country: None (occurrence: None)
  Receive Date: 20110129
  Receipt Date: 20100810
  Transmission Date: 20110831
  Serious: No
  Sender: FDA-Public Use
  Company Number: US-ABBOTT-10P-163-0663382-00

PATIENT
  Age: 40 Year
  Sex: Female

DRUGS (6)
  1. NISEDIAC [Concomitant]
     Indication: HYPERTENSION
     Dosage: 30 MG DAILY
  2. SIMVASTATIN [Concomitant]
     Indication: BLOOD CHOLESTEROL INCREASED
     Dosage: 30 MG DAILY
  3. LISINOPRIL [Concomitant]
     Indication: HYPERTENSION
     Dosage: 20/12.5 MG
  4. HUMIRA [Suspect]
     Indication: PSORIASIS
     Dates: start: 20100601, end: 20100601
  5. METFORMIN [Concomitant]
     Indication: DIABETES MELLITUS
  6. METOPROPOLOL [Concomitant]
     Indication: HYPERTENSION

REACTIONS (2)
  - INJECTION SITE RASH [None]
  - INJECTION SITE PAIN [None]
